FAERS Safety Report 7817339-X (Version None)
Quarter: 2011Q4

REPORT INFORMATION
  Report Type: 
  Country: None (occurrence: None)
  Receive Date: 20111012
  Receipt Date: 20110927
  Transmission Date: 20120403
  Serious: Yes (Death, Hospitalization)
  Sender: FDA-Public Use
  Company Number: FK201102112

PATIENT
  Age: 65 Year
  Sex: Male

DRUGS (5)
  1. METHOTREXATE [Suspect]
     Indication: CRYOGLOBULINAEMIA
  2. CYCLOPHOSPHAMIDE [Suspect]
     Indication: CRYOGLOBULINAEMIA
  3. CORTICOSTEROIDS (CORTICOSTEROIDS) (CORTICOSTEROIDS) [Suspect]
     Indication: CRYOGLOBULINAEMIA
  4. AZATHIOPRINE (AZATHIOPRINE) (AZATHIOPRINE) [Suspect]
     Indication: CRYOGLOBULINAEMIA
  5. MYCOPHENOLATE MOFETIL [Suspect]
     Indication: CRYOGLOBULINAEMIA

REACTIONS (7)
  - INFECTION IN AN IMMUNOCOMPROMISED HOST [None]
  - ISCHAEMIC STROKE [None]
  - STAPHYLOCOCCUS TEST POSITIVE [None]
  - RENAL FAILURE [None]
  - RESPIRATORY DISTRESS [None]
  - SEPSIS [None]
  - SKIN ULCER [None]
